FAERS Safety Report 6008092-3 (Version None)
Quarter: 2008Q4

REPORT INFORMATION
  Report Type: 
  Country: None (occurrence: None)
  Receive Date: 20081217
  Receipt Date: 20080818
  Transmission Date: 20090506
  Serious: No
  Sender: FDA-Public Use
  Company Number: US-ASTRAZENECA-2008UW17001

PATIENT
  Age: 65 Year
  Sex: Male
  Weight: 89.8 kg

DRUGS (2)
  1. CRESTOR [Suspect]
     Indication: BLOOD CHOLESTEROL INCREASED
     Route: 048
     Dates: start: 20080813
  2. ATACAND [Concomitant]

REACTIONS (3)
  - BACK PAIN [None]
  - BED REST [None]
  - MOVEMENT DISORDER [None]
